FAERS Safety Report 8220657-7 (Version None)
Quarter: 2012Q1

REPORT INFORMATION
  Report Type: 
  Country: None (occurrence: None)
  Receive Date: 20120320
  Receipt Date: 20120313
  Transmission Date: 20120608
  Serious: Yes (Disabling)
  Sender: FDA-Public Use
  Company Number: JP-ASTELLAS-2012JP002335

PATIENT
  Age: 22 Year
  Sex: Male
  Weight: 58.8 kg

DRUGS (38)
  1. TACROLIMUS [Suspect]
     Indication: COLITIS ULCERATIVE
     Dosage: 6.5 MG, BID
     Route: 048
     Dates: start: 20100928, end: 20101031
  2. TACROLIMUS [Suspect]
     Dosage: 10.5 MG, UNKNOWN/D
     Route: 048
     Dates: start: 20100828, end: 20100830
  3. TACROLIMUS [Suspect]
     Dosage: 5 MG, BID
     Route: 048
     Dates: start: 20100831, end: 20100902
  4. PREDONEMA [Concomitant]
     Indication: COLITIS ULCERATIVE
     Dosage: 20 MG, UNKNOWN/D
     Route: 054
     Dates: start: 20100801, end: 20100915
  5. LANSOPRAZOLE [Concomitant]
     Dosage: UNK
     Route: 048
     Dates: end: 20101027
  6. FERROUS CITRATE [Concomitant]
     Dosage: UNK
     Route: 048
     Dates: start: 20101021, end: 20101202
  7. CINAL [Concomitant]
     Dosage: UNK
     Route: 048
     Dates: start: 20101101, end: 20101202
  8. TACROLIMUS [Suspect]
     Dosage: 7 MG, UNKNOWN/D
     Route: 048
     Dates: start: 20100818, end: 20100818
  9. TACROLIMUS [Suspect]
     Dosage: 6 MG, BID
     Route: 048
     Dates: start: 20100907, end: 20100910
  10. PREDNISOLONE [Concomitant]
     Dosage: 5 MG, UNKNOWN/D
     Route: 048
     Dates: start: 20110222, end: 20110328
  11. WARFARIN SODIUM [Concomitant]
     Indication: THROMBOSIS
     Dosage: UNK
     Route: 048
     Dates: start: 20100810
  12. PREDNISOLONE SODIUM SUCCINATE INJ [Concomitant]
     Indication: COLITIS ULCERATIVE
     Dosage: 50 MG, UNKNOWN/D
     Route: 065
     Dates: start: 20100624, end: 20100729
  13. TACROLIMUS [Suspect]
     Dosage: 9 MG, UNKNOWN/D
     Route: 048
     Dates: start: 20100826, end: 20100826
  14. TACROLIMUS [Suspect]
     Dosage: 11.5 MG, UNKNOWN/D
     Route: 048
     Dates: start: 20100905, end: 20100906
  15. TACROLIMUS [Suspect]
     Dosage: 6.5 MG, BID
     Route: 048
     Dates: start: 20100911, end: 20100911
  16. PREDNISOLONE [Concomitant]
     Dosage: 4 MG, UNKNOWN/D
     Route: 048
     Dates: start: 20110329, end: 20110523
  17. PREDNISOLONE [Concomitant]
     Dosage: 3 MG, UNKNOWN/D
     Route: 048
     Dates: start: 20110524
  18. RISEDRONATE SODIUM [Concomitant]
     Dosage: UNK
     Route: 048
     Dates: start: 20100727
  19. TACROLIMUS [Suspect]
     Dosage: 9 MG, UNKNOWN/D
     Route: 048
     Dates: start: 20100819, end: 20100819
  20. TACROLIMUS [Suspect]
     Dosage: 5 MG, BID
     Route: 048
     Dates: start: 20100820, end: 20100824
  21. PREDNISOLONE [Concomitant]
     Dosage: 5 MG, UNKNOWN/D
     Route: 048
     Dates: start: 20100929, end: 20110221
  22. MEILAX [Concomitant]
     Dosage: UNK
     Route: 048
     Dates: start: 20100726
  23. TACROLIMUS [Suspect]
     Dosage: 1.5 MG, BID
     Route: 048
     Dates: start: 20100816, end: 20100817
  24. TACROLIMUS [Suspect]
     Dosage: 4 MG, BID
     Route: 048
     Dates: start: 20100825, end: 20100825
  25. TACROLIMUS [Suspect]
     Dosage: 10.5 MG, UNKNOWN/D
     Route: 048
     Dates: start: 20100903, end: 20100903
  26. TACROLIMUS [Suspect]
     Dosage: 6 MG, BID
     Route: 048
     Dates: start: 20100912, end: 20100927
  27. PREDNISOLONE SODIUM SUCCINATE INJ [Concomitant]
     Dosage: 40 MG, UNKNOWN/D
     Route: 065
     Dates: start: 20100730, end: 20100731
  28. CEFAZOLIN SODIUM [Concomitant]
     Indication: COLITIS ULCERATIVE
     Dosage: UNK
     Route: 048
     Dates: start: 20100812
  29. TACROLIMUS [Suspect]
     Dosage: 5 MG, BID
     Route: 048
     Dates: start: 20100827, end: 20100827
  30. TACROLIMUS [Suspect]
     Dosage: 6 MG, BID
     Route: 048
     Dates: start: 20101101, end: 20101212
  31. AZATHIOPRINE [Concomitant]
     Indication: COLITIS ULCERATIVE
     Dosage: 50 MG, UNKNOWN/D
     Route: 048
     Dates: start: 20100624, end: 20100726
  32. AZATHIOPRINE [Concomitant]
     Dosage: 50 MG, UNKNOWN/D
     Route: 048
     Dates: start: 20100924
  33. PREDNISOLONE [Concomitant]
     Indication: COLITIS ULCERATIVE
     Dosage: 10 MG, UNKNOWN/D
     Route: 048
     Dates: start: 20100813, end: 20100903
  34. PREDNISOLONE [Concomitant]
     Dosage: 10 MG, UNKNOWN/D
     Route: 048
     Dates: start: 20100904, end: 20100928
  35. TACROLIMUS [Suspect]
     Dosage: 5.5 MG, BID
     Route: 048
     Dates: start: 20100904, end: 20100905
  36. PREDNISOLONE SODIUM SUCCINATE INJ [Concomitant]
     Dosage: 10 MG, UNKNOWN/D
     Route: 065
     Dates: start: 20100810, end: 20100812
  37. ELENTAL [Concomitant]
     Indication: COLITIS ULCERATIVE
     Dosage: UNK
     Route: 048
     Dates: start: 20100805
  38. FAMOTIDINE [Concomitant]
     Dosage: UNK
     Route: 048
     Dates: start: 20101025, end: 20101202

REACTIONS (1)
  - RENAL DISORDER [None]
